FAERS Safety Report 5090744-3 (Version None)
Quarter: 2006Q3

REPORT INFORMATION
  Report Type: 
  Country: None (occurrence: None)
  Receive Date: 20060823
  Receipt Date: 20060815
  Transmission Date: 20061208
  Serious: Yes (Other)
  Sender: FDA-Public Use
  Company Number: 2006099494

PATIENT
  Age: 74 Year
  Sex: Male

DRUGS (1)
  1. SULFASALAZINE [Suspect]
     Indication: DRUG USE FOR UNKNOWN INDICATION
     Dosage: 4000 MG (3 IN 1 D), ORAL
     Route: 048
     Dates: start: 20060501

REACTIONS (2)
  - DERMATITIS EXFOLIATIVE [None]
  - DRUG ERUPTION [None]
